FAERS Safety Report 11857924 (Version 2)
Quarter: 2016Q1

REPORT INFORMATION
  Report Type: Spontaneous
  Country: DE (occurrence: DE)
  Receive Date: 20151222
  Receipt Date: 20160224
  Transmission Date: 20160526
  Serious: Yes (Hospitalization, Other)
  Sender: FDA-Public Use
  Company Number: DE-JNJFOC-20151213371

PATIENT
  Age: 51 Year
  Sex: Male
  Weight: 66 kg

DRUGS (1)
  1. SIMPONI [Suspect]
     Active Substance: GOLIMUMAB
     Indication: COLITIS ULCERATIVE
     Route: 058
     Dates: start: 20150413, end: 201507

REACTIONS (5)
  - Pneumonia [Recovered/Resolved]
  - Pulmonary tuberculosis [Unknown]
  - Antineutrophil cytoplasmic antibody increased [Unknown]
  - Colitis ulcerative [Recovered/Resolved]
  - Respiratory tract infection [Unknown]

NARRATIVE: CASE EVENT DATE: 201507
